FAERS Safety Report 4469534-8 (Version None)
Quarter: 2004Q4

REPORT INFORMATION
  Report Type: 
  Country: None (occurrence: None)
  Receive Date: 20041005
  Receipt Date: 20040927
  Transmission Date: 20050328
  Serious: Yes (Death)
  Sender: FDA-Public Use
  Company Number: 2004AC00405

PATIENT
  Age: 24 Month
  Sex: Female

DRUGS (2)
  1. OMEPRAZOLE [Suspect]
     Indication: GASTROOESOPHAGEAL REFLUX DISEASE
  2. DOMPERIDONE [Concomitant]

REACTIONS (13)
  - BACTERIAL INFECTION [None]
  - CARDIAC ARREST [None]
  - CARDIAC VALVE VEGETATION [None]
  - CREPITATIONS [None]
  - CULTURE POSITIVE [None]
  - EMPHYSEMA [None]
  - FEEDING TUBE COMPLICATION [None]
  - GASTRITIS [None]
  - GASTROINTESTINAL TRACT MUCOSAL DISCOLOURATION [None]
  - KLEBSIELLA INFECTION [None]
  - MITRAL VALVE DISEASE [None]
  - SEPSIS [None]
  - SINUS TACHYCARDIA [None]
